FAERS Safety Report 16015542 (Version 1)
Quarter: 2019Q1

REPORT INFORMATION
  Report Type: Spontaneous
  Country: FR (occurrence: FR)
  Receive Date: 20190228
  Receipt Date: 20190228
  Transmission Date: 20190418
  Serious: Yes (Other)
  Sender: FDA-Public Use
  Company Number: FR-TEVA-2019-FR-1016166

PATIENT
  Age: 75 Year
  Sex: Male

DRUGS (13)
  1. DAFALGAN [Suspect]
     Active Substance: ACETAMINOPHEN
     Route: 048
  2. BUTAZOLIDINE (PHENYLBUTAZONE) [Suspect]
     Active Substance: PHENYLBUTAZONE
     Dates: end: 2003
  3. SOTALOL (CHLORHYDRATE DE) [Suspect]
     Active Substance: SOTALOL
     Route: 048
  4. APRANAX [Suspect]
     Active Substance: NAPROXEN
     Route: 048
     Dates: end: 2003
  5. CHRONO INDOCID [Suspect]
     Active Substance: INDOMETHACIN
     Route: 048
     Dates: end: 2003
  6. REMICADE [Suspect]
     Active Substance: INFLIXIMAB
     Route: 042
  7. CELEBREX [Suspect]
     Active Substance: CELECOXIB
     Route: 048
     Dates: end: 2003
  8. PRAMIPEXOLE BASE [Suspect]
     Active Substance: PRAMIPEXOLE
     Route: 048
  9. LERCAN [Suspect]
     Active Substance: LERCANIDIPINE
     Route: 048
  10. LORAZEPAM. [Suspect]
     Active Substance: LORAZEPAM
     Route: 048
  11. TRAMADOL BASE [Suspect]
     Active Substance: TRAMADOL
     Route: 048
  12. GABAPENTINE [Suspect]
     Active Substance: GABAPENTIN
     Route: 048
  13. SALAZOPYRINE [Suspect]
     Active Substance: SULFASALAZINE
     Route: 048
     Dates: end: 2003

REACTIONS (1)
  - Pulmonary fibrosis [Not Recovered/Not Resolved]

NARRATIVE: CASE EVENT DATE: 2012
